FAERS Safety Report 7251599-1 (Version None)
Quarter: 2011Q1

REPORT INFORMATION
  Report Type: 
  Country: None (occurrence: None)
  Receive Date: 20110128
  Receipt Date: 20110125
  Transmission Date: 20110831
  Serious: Yes (Other)
  Sender: FDA-Public Use
  Company Number: US-PFIZER INC-2011017945

PATIENT
  Sex: Male

DRUGS (2)
  1. CIALIS [Interacting]
  2. CHANTIX [Suspect]
     Indication: TOBACCO USER

REACTIONS (2)
  - FEELING DRUNK [None]
  - DRUG INTERACTION [None]
